FAERS Safety Report 6036598-X (Version None)
Quarter: 2009Q1

REPORT INFORMATION
  Report Type: 
  Country: None (occurrence: None)
  Receive Date: 20090114
  Receipt Date: 20090107
  Transmission Date: 20090719
  Serious: Yes (Other)
  Sender: FDA-Public Use
  Company Number: ZA-ABBOTT-08P-143-0494295-00

PATIENT
  Sex: Male
  Weight: 90 kg

DRUGS (10)
  1. HUMIRA [Suspect]
     Indication: PSORIATIC ARTHROPATHY
     Route: 058
     Dates: start: 20060606
  2. HUMIRA [Suspect]
     Indication: SPONDYLITIS
  3. METHOTREXATE [Concomitant]
     Indication: PSORIATIC ARTHROPATHY
     Dosage: 10  MG WEEKLY
     Route: 048
     Dates: start: 20060606
  4. METHOTREXATE [Concomitant]
     Indication: SPONDYLITIS
  5. FOLIC ACID [Concomitant]
     Indication: PSORIATIC ARTHROPATHY
     Route: 048
     Dates: start: 20060606
  6. FOLIC ACID [Concomitant]
     Indication: SPONDYLITIS
  7. PREDNISONE TAB [Concomitant]
     Indication: PSORIATIC ARTHROPATHY
     Route: 048
  8. PREDNISONE TAB [Concomitant]
     Indication: SPONDYLITIS
  9. ARCOXIA [Concomitant]
     Indication: PSORIATIC ARTHROPATHY
     Dosage: DAILY
     Route: 048
  10. ARCOXIA [Concomitant]
     Indication: SPONDYLITIS

REACTIONS (2)
  - ASCITES [None]
  - LABORATORY TEST ABNORMAL [None]
